FAERS Safety Report 20911237 (Version 1)
Quarter: 2022Q2

REPORT INFORMATION
  Report Type: Spontaneous
  Country: US (occurrence: US)
  Receive Date: 20220603
  Receipt Date: 20220603
  Transmission Date: 20220720
  Serious: Yes (Other)
  Sender: FDA-Public Use
  Company Number: US-FreseniusKabi-FK202207704

PATIENT
  Age: 12 Month
  Sex: Male

DRUGS (11)
  1. DOXORUBICIN [Suspect]
     Active Substance: DOXORUBICIN
     Indication: Clear cell sarcoma of the kidney
  2. ETOPOSIDE [Suspect]
     Active Substance: ETOPOSIDE
     Indication: Clear cell sarcoma of the kidney
  3. ETOPOSIDE [Suspect]
     Active Substance: ETOPOSIDE
  4. VINCRISTINE [Suspect]
     Active Substance: VINCRISTINE
     Indication: Clear cell sarcoma of the kidney
  5. VINCRISTINE [Suspect]
     Active Substance: VINCRISTINE
  6. IFOSFAMIDE [Suspect]
     Active Substance: IFOSFAMIDE
     Indication: Clear cell sarcoma of the kidney
  7. CARBOPLATIN [Suspect]
     Active Substance: CARBOPLATIN
     Indication: Clear cell sarcoma of the kidney
  8. IRINOTECAN [Suspect]
     Active Substance: IRINOTECAN
     Indication: Clear cell sarcoma of the kidney
     Dosage: DECREASED TO 37.5 MG/M2
  9. CYCLOPHOSPHAMIDE [Suspect]
     Active Substance: CYCLOPHOSPHAMIDE
     Indication: Clear cell sarcoma of the kidney
  10. TEMOZOLOMIDE [Suspect]
     Active Substance: TEMOZOLOMIDE
     Indication: Clear cell sarcoma of the kidney
  11. CEFIXIME [Concomitant]
     Active Substance: CEFIXIME
     Indication: Prophylaxis

REACTIONS (7)
  - Feeding disorder [Unknown]
  - Hypogammaglobulinaemia [Unknown]
  - Pneumatosis intestinalis [Unknown]
  - Food protein-induced enterocolitis syndrome [Unknown]
  - Speech disorder developmental [Unknown]
  - Diarrhoea [Unknown]
  - Carnitine deficiency [Unknown]
